FAERS Safety Report 9642875 (Version 1)
Quarter: 2013Q4

REPORT INFORMATION
  Report Type: Spontaneous
  Country: IE (occurrence: IE)
  Receive Date: 20131024
  Receipt Date: 20131024
  Transmission Date: 20140711
  Serious: Yes (Other)
  Sender: FDA-Public Use
  Company Number: IE-NOVOPROD-390484

PATIENT
  Sex: Female

DRUGS (12)
  1. VAGIFEM [Suspect]
     Indication: PRODUCT USED FOR UNKNOWN INDICATION
     Dosage: 25 ?G, BIW
     Route: 065
     Dates: start: 20130507
  2. MACRODANTIN [Suspect]
     Indication: URINARY TRACT INFECTION
     Dosage: 400 MG, QD
     Route: 048
     Dates: start: 20130207
  3. MACRODANTIN [Suspect]
     Dosage: 100 MG, QD (NOCTE)
  4. MACRODANTIN [Suspect]
     Dosage: 300 MG, QD
     Route: 048
     Dates: start: 20130323
  5. MACRODANTIN [Suspect]
     Dosage: 100 MG, QD (NOCTE)
     Route: 048
  6. MACRODANTIN [Suspect]
     Dosage: 400 MG, QD
     Route: 048
     Dates: start: 20130520
  7. MACRODANTIN [Suspect]
     Dosage: 100 MG, QD (NOCTE)
     Route: 048
     Dates: start: 201306
  8. DONA                               /00336901/ [Concomitant]
     Dosage: 500 MG, QD
     Route: 048
  9. CARDURA [Concomitant]
     Dosage: 8 MG, QD
     Route: 048
  10. DILZEM [Concomitant]
     Dosage: 240 MG, QD
     Route: 048
  11. NU-SEALS [Concomitant]
     Dosage: 75 MG, QD
     Route: 048
  12. PARALIEF [Concomitant]

REACTIONS (1)
  - Hypoaesthesia [Not Recovered/Not Resolved]
